FAERS Safety Report 20520638 (Version 1)
Quarter: 2022Q1

REPORT INFORMATION
  Report Type: Spontaneous
  Country: US (occurrence: US)
  Receive Date: 20220225
  Receipt Date: 20220225
  Transmission Date: 20220423
  Serious: Yes (Other)
  Sender: FDA-Public Use
  Company Number: US-MALLINCKRODT-T202200843

PATIENT
  Sex: Male
  Weight: 162 kg

DRUGS (1)
  1. H.P. ACTHAR [Suspect]
     Active Substance: CORTICOTROPIN
     Indication: Nephrotic syndrome
     Dosage: 80 UNITS, TWICE A WEEK
     Route: 058

REACTIONS (2)
  - Abscess drainage [Unknown]
  - Abscess [Recovering/Resolving]
